FAERS Safety Report 4947558-1 (Version None)
Quarter: 2006Q1

REPORT INFORMATION
  Report Type: 
  Country: None (occurrence: None)
  Receive Date: 20060314
  Receipt Date: 20060301
  Transmission Date: 20060701
  Serious: Yes (Hospitalization)
  Sender: FDA-Public Use
  Company Number: 2006032586

PATIENT
  Age: 85 Year
  Sex: Female

DRUGS (3)
  1. PREDNISOLONE [Suspect]
     Indication: POLYMYALGIA RHEUMATICA
     Dosage: (20 MG), ORAL
     Route: 048
     Dates: start: 20051101
  2. SLOZEM (DILTIAZEM HYDROCHLORIDE) [Concomitant]
  3. PERINDOPRIL (PERINDOPRIL) [Concomitant]

REACTIONS (2)
  - DIABETES MELLITUS [None]
  - DIABETIC KETOACIDOSIS [None]
